FAERS Safety Report 13924856 (Version 2)
Quarter: 2017Q3

REPORT INFORMATION
  Report Type: Spontaneous
  Country: CH (occurrence: CH)
  Receive Date: 20170831
  Receipt Date: 20170913
  Transmission Date: 20171127
  Serious: Yes (Hospitalization, Other)
  Sender: FDA-Public Use
  Company Number: CH-ASTRAZENECA-2017SE86635

PATIENT
  Age: 946 Month
  Sex: Male

DRUGS (24)
  1. NEXIUM [Suspect]
     Active Substance: ESOMEPRAZOLE MAGNESIUM
     Route: 048
     Dates: start: 20140914, end: 20141013
  2. HEPARIN [Interacting]
     Active Substance: HEPARIN SODIUM
     Route: 058
     Dates: start: 201606
  3. FLAGYL [Interacting]
     Active Substance: METRONIDAZOLE\METRONIDAZOLE HYDROCHLORIDE
     Indication: COLITIS
     Route: 048
     Dates: start: 20160601, end: 20160610
  4. MOTILIUM [Interacting]
     Active Substance: DOMPERIDONE
     Route: 048
     Dates: start: 20150206, end: 20150210
  5. CO AMOXICLAV [Interacting]
     Active Substance: AMOXICILLIN\CLAVULANIC ACID
     Route: 048
     Dates: start: 20160601, end: 20160610
  6. PASPERTIN [Concomitant]
     Active Substance: METOCLOPRAMIDE HYDROCHLORIDE
     Route: 048
     Dates: start: 201502
  7. NEXIUM [Interacting]
     Active Substance: ESOMEPRAZOLE MAGNESIUM
     Route: 041
     Dates: start: 20140910, end: 20140913
  8. DROPERIDOL. [Interacting]
     Active Substance: DROPERIDOL
     Dosage: 0.5MG UNKNOWN
     Route: 040
     Dates: start: 20150129, end: 20150210
  9. TOREM [Concomitant]
     Active Substance: TORSEMIDE
     Route: 048
  10. NEXIUM [Interacting]
     Active Substance: ESOMEPRAZOLE MAGNESIUM
     Route: 048
     Dates: start: 20140914, end: 20140918
  11. AUGMENTIN [Concomitant]
     Active Substance: AMOXICILLIN\CLAVULANATE POTASSIUM
     Route: 041
     Dates: start: 20141113
  12. ROCEPHINE [Concomitant]
     Active Substance: CEFTRIAXONE SODIUM
     Dates: start: 20161005, end: 20161028
  13. CORDARONE [Interacting]
     Active Substance: AMIODARONE HYDROCHLORIDE
     Indication: ATRIAL FIBRILLATION
     Route: 048
     Dates: start: 201406, end: 20141113
  14. FLAGYL [Interacting]
     Active Substance: METRONIDAZOLE\METRONIDAZOLE HYDROCHLORIDE
     Indication: COLITIS
     Route: 048
     Dates: start: 20141114, end: 20141124
  15. FLAGYL [Interacting]
     Active Substance: METRONIDAZOLE\METRONIDAZOLE HYDROCHLORIDE
     Indication: COLITIS
     Route: 048
     Dates: start: 20161005, end: 20161028
  16. ZANIDIP [Concomitant]
     Active Substance: LERCANIDIPINE HYDROCHLORIDE
     Route: 048
  17. SERETIDE [Concomitant]
     Active Substance: FLUTICASONE PROPIONATE\SALMETEROL XINAFOATE
  18. PANTOZOL [Concomitant]
     Active Substance: PANTOPRAZOLE SODIUM
     Route: 048
  19. ZALDIAR [Concomitant]
     Active Substance: ACETAMINOPHEN\TRAMADOL HYDROCHLORIDE
     Dates: start: 201501
  20. FLUCONAZOLE. [Concomitant]
     Active Substance: FLUCONAZOLE
     Route: 048
     Dates: start: 20141112, end: 20141120
  21. JANUVIA [Concomitant]
     Active Substance: SITAGLIPTIN PHOSPHATE
  22. KLACID [Concomitant]
     Active Substance: CLARITHROMYCIN
     Route: 041
     Dates: start: 20141113
  23. EUTHYROX [Concomitant]
     Active Substance: LEVOTHYROXINE SODIUM
     Route: 048
     Dates: start: 20150129, end: 201606
  24. PANTOPRAZOLE [Concomitant]
     Active Substance: PANTOPRAZOLE
     Route: 048
     Dates: start: 20141120

REACTIONS (6)
  - Electrocardiogram QT prolonged [Recovered/Resolved]
  - Hypothyroidism [Recovered/Resolved]
  - Drug interaction [Unknown]
  - Gastroenteritis clostridial [Recovered/Resolved]
  - Haematoma [Recovered/Resolved]
  - Nausea [Recovered/Resolved]

NARRATIVE: CASE EVENT DATE: 201411
